FAERS Safety Report 4649880-5 (Version None)
Quarter: 2005Q2

REPORT INFORMATION
  Report Type: 
  Country: None (occurrence: None)
  Receive Date: 20050502
  Receipt Date: 20050308
  Transmission Date: 20051028
  Serious: Yes (Other)
  Sender: FDA-Public Use
  Company Number: PHBS2005JP03508

PATIENT
  Age: 77 Year
  Sex: Female
  Weight: 52 kg

DRUGS (2)
  1. LOCHOL [Suspect]
     Indication: HYPERLIPIDAEMIA
     Dosage: UNK, UNK
     Route: 048
     Dates: start: 20000101, end: 20030701
  2. URSO [Suspect]
     Indication: CHOLELITHIASIS
     Dosage: 600 MG, QD
     Route: 048
     Dates: start: 19980101, end: 20050101

REACTIONS (3)
  - CHEST DISCOMFORT [None]
  - CHEST X-RAY ABNORMAL [None]
  - INTERSTITIAL LUNG DISEASE [None]
